FAERS Safety Report 5890574-6 (Version None)
Quarter: 2008Q3

REPORT INFORMATION
  Report Type: 
  Country: None (occurrence: None)
  Receive Date: 20080922
  Receipt Date: 20080918
  Transmission Date: 20090109
  Serious: Yes (Death)
  Sender: FDA-Public Use
  Company Number: PH-BRISTOL-MYERS SQUIBB COMPANY-14341622

PATIENT

DRUGS (2)
  1. IRBESARTAN [Suspect]
  2. SIMVASTATIN [Suspect]
     Indication: HYPERLIPIDAEMIA

REACTIONS (1)
  - HEPATOTOXICITY [None]
